FAERS Safety Report 4506702-0 (Version None)
Quarter: 2004Q4

REPORT INFORMATION
  Report Type: 
  Country: None (occurrence: None)
  Receive Date: 20041122
  Receipt Date: 20041110
  Transmission Date: 20050328
  Serious: Yes (Hospitalization)
  Sender: FDA-Public Use
  Company Number: US-MERCK-0411USA01985

PATIENT
  Age: 35 Year
  Sex: Male

DRUGS (2)
  1. VIOXX [Suspect]
     Indication: CHEST PAIN
     Route: 048
  2. OXYCONTIN [Concomitant]
     Indication: CHEST PAIN
     Route: 065

REACTIONS (1)
  - PULMONARY EMBOLISM [None]
